FAERS Safety Report 24375291 (Version 1)
Quarter: 2024Q3

REPORT INFORMATION
  Report Type: Spontaneous
  Country: FR (occurrence: FR)
  Receive Date: 20240928
  Receipt Date: 20240928
  Transmission Date: 20241017
  Serious: Yes (Other)
  Sender: AUROBINDO
  Company Number: FR-AFSSAPS-AVMP2024000257

PATIENT
  Age: 44 Year
  Sex: Female

DRUGS (2)
  1. DIAZEPAM [Suspect]
     Active Substance: DIAZEPAM
     Indication: Product used for unknown indication
     Dosage: 4 TABLETS PER DAY
     Route: 048
     Dates: start: 202311, end: 202402
  2. DIAZEPAM [Suspect]
     Active Substance: DIAZEPAM
     Dosage: 6 TO 7 TABLETS PER DAY
     Route: 048
     Dates: start: 202402

REACTIONS (2)
  - Drug use disorder [Unknown]
  - Pharmaceutical nomadism [Unknown]

NARRATIVE: CASE EVENT DATE: 20231101
